FAERS Safety Report 10072604 (Version 2)
Quarter: 2014Q2

REPORT INFORMATION
  Report Type: Spontaneous
  Country: US (occurrence: US)
  Receive Date: 20140411
  Receipt Date: 20140514
  Transmission Date: 20141212
  Serious: Yes (Hospitalization)
  Sender: FDA-Public Use
  Company Number: US-BAYER-2014-052947

PATIENT
  Age: 31 Year
  Sex: Female
  Weight: 46.26 kg

DRUGS (5)
  1. YAZ [Suspect]
     Dosage: UNK
     Dates: start: 200806
  2. YASMIN [Suspect]
     Dosage: UNK
     Dates: start: 20080312, end: 20080615
  3. GIANVI [Suspect]
     Dosage: UNK
     Dates: start: 201202, end: 20120312
  4. ALDACTONE [SPIRONOLACTONE] [Concomitant]
     Dosage: 50 MG, DAILY
     Route: 048
  5. TYLENOL [PARACETAMOL] [Concomitant]

REACTIONS (7)
  - Deep vein thrombosis [Recovered/Resolved]
  - Pelvic venous thrombosis [Recovered/Resolved]
  - Pain in extremity [Recovered/Resolved]
  - Peripheral swelling [Recovered/Resolved]
  - Injury [Recovered/Resolved]
  - Emotional distress [None]
  - Anhedonia [None]
